FAERS Safety Report 18197602 (Version 1)
Quarter: 2020Q3

REPORT INFORMATION
  Report Type: Spontaneous
  Country: JP (occurrence: JP)
  Receive Date: 20200826
  Receipt Date: 20200826
  Transmission Date: 20201103
  Serious: Yes (Death, Hospitalization, Other)
  Sender: FDA-Public Use
  Company Number: JP-PFIZER INC-2020330313

PATIENT
  Age: 71 Year
  Sex: Male

DRUGS (15)
  1. QUETIAPINE FUMARATE. [Suspect]
     Active Substance: QUETIAPINE FUMARATE
     Dosage: 575 MG/DAY, UNKNOWN FREQ.
     Route: 048
  2. MAGNESIUM OXIDE. [Concomitant]
     Active Substance: MAGNESIUM OXIDE
     Dosage: UNK UNK, UNKNOWN FREQ.
     Route: 048
  3. CASTOR OIL. [Concomitant]
     Active Substance: CASTOR OIL
     Dosage: UNK UNK, UNKNOWN FREQ.
     Route: 048
  4. DAIKENCHUTO [Concomitant]
     Active Substance: HERBALS
     Dosage: UNK
  5. ALINAMIN?F [FURSULTIAMINE HYDROCHLORIDE] [Concomitant]
     Dosage: UNK UNK, UNKNOWN FREQ.
     Route: 048
  6. NITRAZEPAM [Concomitant]
     Active Substance: NITRAZEPAM
     Dosage: UNK UNK, UNKNOWN FREQ.
     Route: 048
  7. CALCIUM LACTATE [Concomitant]
     Active Substance: CALCIUM LACTATE
     Dosage: UNK UNK, UNKNOWN FREQ.
     Route: 048
  8. PICOSULFATE [Concomitant]
     Active Substance: SODIUM PICOSULFATE
     Dosage: UNK UNK, UNKNOWN FREQ.
     Route: 048
  9. CELECOX [Suspect]
     Active Substance: CELECOXIB
     Indication: CERVICOBRACHIAL SYNDROME
     Dosage: UNK UNK, UNKNOWN FREQ.
     Route: 065
  10. CELECOX [Suspect]
     Active Substance: CELECOXIB
     Indication: BACK PAIN
  11. SENNOSIDE A [Concomitant]
     Active Substance: SENNOSIDE A
     Dosage: UNK UNK, UNKNOWN FREQ.
     Route: 048
  12. LITHIUM CARBONATE. [Concomitant]
     Active Substance: LITHIUM CARBONATE
     Dosage: UNK UNK, UNKNOWN FREQ.
     Route: 048
  13. FOLIAMIN [Concomitant]
     Active Substance: FOLIC ACID
     Dosage: UNK UNK, UNKNOWN FREQ.
     Route: 048
  14. MEDICON [DEXTROMETHORPHAN HYDROBROMIDE] [Concomitant]
     Active Substance: DEXTROMETHORPHAN HYDROBROMIDE
     Dosage: UNK UNK, UNKNOWN FREQ.
     Route: 048
  15. AFLOQUALONE [Concomitant]
     Active Substance: AFLOQUALONE
     Dosage: UNK UNK, UNKNOWN FREQ.
     Route: 048

REACTIONS (2)
  - Ileus [Recovered/Resolved]
  - Death [Fatal]

NARRATIVE: CASE EVENT DATE: 20200723
